FAERS Safety Report 6594533-X (Version None)
Quarter: 2010Q1

REPORT INFORMATION
  Report Type: 
  Country: None (occurrence: None)
  Receive Date: 20100222
  Receipt Date: 20100210
  Transmission Date: 20100710
  Serious: Yes (Other)
  Sender: FDA-Public Use
  Company Number: PHEH2010US02414

PATIENT

DRUGS (1)
  1. AFINITOR [Suspect]

REACTIONS (1)
  - NERVOUS SYSTEM DISORDER [None]
